FAERS Safety Report 9790271 (Version 3)
Quarter: 2014Q1

REPORT INFORMATION
  Report Type: Spontaneous
  Country: US (occurrence: US)
  Receive Date: 20131231
  Receipt Date: 20140305
  Transmission Date: 20141002
  Serious: No
  Sender: FDA-Public Use
  Company Number: US-B.I. PHARMACEUTICALS,INC./RIDGEFIELD-2013-BI-43397BP

PATIENT
  Sex: Female
  Weight: 54 kg

DRUGS (3)
  1. SPIRIVA [Suspect]
     Indication: EMPHYSEMA
     Dosage: 36 MCG
     Route: 048
     Dates: start: 2011
  2. LOSARTAN POTASSIUM [Concomitant]
     Indication: HYPERTENSION
     Dosage: 100 MG
     Route: 048
  3. ALBUTEROL [Concomitant]
     Indication: EMPHYSEMA
     Dosage: 10 ML
     Route: 055

REACTIONS (5)
  - Dyspnoea [Recovered/Resolved]
  - Incorrect route of drug administration [Recovered/Resolved]
  - Overdose [Unknown]
  - Product quality issue [Unknown]
  - Product quality issue [Unknown]
